FAERS Safety Report 18276065 (Version 1)
Quarter: 2020Q3

REPORT INFORMATION
  Report Type: Other
  Country: US (occurrence: US)
  Receive Date: 20200917
  Receipt Date: 20200917
  Transmission Date: 20201103
  Serious: Yes (Other)
  Sender: FDA-Public Use
  Company Number: US-INTERCEPT-PM2020001187

PATIENT
  Age: 58 Year
  Sex: Female

DRUGS (3)
  1. NADOLOL. [Suspect]
     Active Substance: NADOLOL
     Indication: PRODUCT USED FOR UNKNOWN INDICATION
     Dosage: UNK
  2. OCALIVA [Suspect]
     Active Substance: OBETICHOLIC ACID
     Dosage: 5 MG, QW
     Route: 048
     Dates: start: 201804
  3. OCALIVA [Suspect]
     Active Substance: OBETICHOLIC ACID
     Indication: PRIMARY BILIARY CHOLANGITIS
     Dosage: 5 MG, QD
     Route: 048
     Dates: start: 201609

REACTIONS (9)
  - Joint noise [Unknown]
  - Splenomegaly [Unknown]
  - Varices oesophageal [Unknown]
  - Pruritus [Unknown]
  - Dry mouth [Recovering/Resolving]
  - Blood pressure abnormal [Recovered/Resolved]
  - Cholelithiasis [Unknown]
  - Blood alkaline phosphatase abnormal [Unknown]
  - Peripheral swelling [Unknown]

NARRATIVE: CASE EVENT DATE: 2020
